FAERS Safety Report 6192413-5 (Version None)
Quarter: 2009Q2

REPORT INFORMATION
  Report Type: 
  Country: None (occurrence: None)
  Receive Date: 20090513
  Receipt Date: 20090513
  Transmission Date: 20091009
  Serious: Yes (Other)
  Sender: FDA-Public Use
  Company Number: None

PATIENT
  Sex: Male
  Weight: 72.5755 kg

DRUGS (2)
  1. GABAPENTIN [Suspect]
     Indication: MIGRAINE
     Dosage: 3600 MG DAILY
     Dates: start: 20080301
  2. LITHIUM [Suspect]
     Indication: BIPOLAR DISORDER
     Dosage: 300MG DAILY
     Dates: start: 20090301

REACTIONS (7)
  - CHEST PAIN [None]
  - CHILLS [None]
  - COLD SWEAT [None]
  - CONDITION AGGRAVATED [None]
  - HEADACHE [None]
  - VISION BLURRED [None]
  - VOMITING [None]
